FAERS Safety Report 12085692 (Version 3)
Quarter: 2016Q2

REPORT INFORMATION
  Report Type: Spontaneous
  Country: BR (occurrence: BR)
  Receive Date: 20160217
  Receipt Date: 20160427
  Transmission Date: 20160815
  Serious: Yes (Hospitalization, Other)
  Sender: FDA-Public Use
  Company Number: BR-BAYER-2016-029974

PATIENT
  Age: 30 Year
  Sex: Female

DRUGS (2)
  1. MIRENA [Suspect]
     Active Substance: LEVONORGESTREL
     Indication: CONTRACEPTION
     Dosage: 20 MCG/24HR, CONT
     Route: 015
     Dates: start: 201011, end: 20120425
  2. NIMESULIDE [Concomitant]
     Active Substance: NIMESULIDE

REACTIONS (9)
  - Pregnancy with contraceptive device [Recovered/Resolved]
  - Caesarean section [None]
  - High risk pregnancy [Recovered/Resolved]
  - Psychological trauma [None]
  - Metrorrhagia [Recovered/Resolved]
  - Vein disorder [None]
  - Embedded device [Recovered/Resolved]
  - Drug ineffective [None]
  - Amenorrhoea [None]

NARRATIVE: CASE EVENT DATE: 2011
